FAERS Safety Report 10717136 (Version 2)
Quarter: 2015Q1

REPORT INFORMATION
  Report Type: Spontaneous
  Country: FR (occurrence: FR)
  Receive Date: 20150116
  Receipt Date: 20150203
  Transmission Date: 20150721
  Serious: Yes (Other)
  Sender: FDA-Public Use
  Company Number: FR-VIVUS-2014V1000661

PATIENT
  Age: 63 Year
  Sex: Male

DRUGS (1)
  1. SPEDRA [Suspect]
     Active Substance: AVANAFIL
     Indication: ERECTILE DYSFUNCTION
     Route: 048
     Dates: start: 20141123, end: 20141123

REACTIONS (2)
  - Drug ineffective [Recovered/Resolved]
  - Vitreous detachment [Not Recovered/Not Resolved]

NARRATIVE: CASE EVENT DATE: 20141123
